FAERS Safety Report 5849584-7 (Version None)
Quarter: 2008Q3

REPORT INFORMATION
  Report Type: 
  Country: None (occurrence: None)
  Receive Date: 20080819
  Receipt Date: 20080818
  Transmission Date: 20090109
  Serious: Yes (Other)
  Sender: FDA-Public Use
  Company Number: A0743058A

PATIENT
  Age: 30 Year
  Sex: Male

DRUGS (1)
  1. ALLI [Suspect]
     Indication: WEIGHT LOSS DIET
     Route: 048
     Dates: start: 20080701, end: 20080801

REACTIONS (6)
  - BACK PAIN [None]
  - BLOOD URINE PRESENT [None]
  - CHROMATURIA [None]
  - DISCOMFORT [None]
  - NEPHROLITHIASIS [None]
  - SWELLING [None]
